FAERS Safety Report 4642205-0 (Version None)
Quarter: 2005Q2

REPORT INFORMATION
  Report Type: 
  Country: None (occurrence: None)
  Receive Date: 20050421
  Receipt Date: 20050421
  Transmission Date: 20051028
  Serious: Yes (Other)
  Sender: FDA-Public Use
  Company Number: None

PATIENT
  Age: 44 Year
  Sex: Female
  Weight: 68.4932 kg

DRUGS (1)
  1. FENTANYL [Suspect]
     Indication: ABDOMINAL PAIN
     Dosage: 75 MCG PATCH Q 72 HRS

REACTIONS (6)
  - ABDOMINAL PAIN [None]
  - CHEST PAIN [None]
  - DRUG EFFECT DECREASED [None]
  - NAUSEA [None]
  - PAIN [None]
  - PAIN IN EXTREMITY [None]
